FAERS Safety Report 9848112 (Version 1)
Quarter: 2014Q1

REPORT INFORMATION
  Report Type: Spontaneous
  Country: US (occurrence: None)
  Receive Date: 20140127
  Receipt Date: 20140127
  Transmission Date: 20141002
  Serious: Yes (Other)
  Sender: FDA-Public Use
  Company Number: None

PATIENT
  Age: 15 Year
  Sex: Male
  Weight: 34 kg

DRUGS (6)
  1. OLANZAPINE [Suspect]
     Route: 048
     Dates: start: 20111107, end: 20111207
  2. DEPAKOTE [Concomitant]
  3. LAMICTAL [Concomitant]
  4. IV IGG [Concomitant]
  5. BACLOFAN [Concomitant]
  6. RISPERDIL [Concomitant]

REACTIONS (10)
  - Coma [None]
  - Dehydration [None]
  - Lethargy [None]
  - Hypotension [None]
  - Hypoglycaemia [None]
  - Depressed level of consciousness [None]
  - Cognitive disorder [None]
  - Urine ketone body present [None]
  - Hypophagia [None]
  - Product substitution issue [None]
